FAERS Safety Report 10934229 (Version 1)
Quarter: 2015Q1

REPORT INFORMATION
  Report Type: Report from Study
  Country: NL (occurrence: NL)
  Receive Date: 20150320
  Receipt Date: 20150320
  Transmission Date: 20150721
  Serious: Yes (Other)
  Sender: FDA-Public Use
  Company Number: NL-AMGEN-NLDSL2015023844

PATIENT
  Age: 57 Year
  Sex: Female

DRUGS (1)
  1. ARANESP [Suspect]
     Active Substance: DARBEPOETIN ALFA
     Indication: PRODUCT USED FOR UNKNOWN INDICATION
     Dosage: 500 MUG, Q3WK
     Route: 058
     Dates: start: 20150109, end: 20150312

REACTIONS (4)
  - Vestibular disorder [Unknown]
  - Eye disorder [Unknown]
  - Sleep disorder [Unknown]
  - Dizziness [Unknown]

NARRATIVE: CASE EVENT DATE: 201503
